FAERS Safety Report 4607826-X (Version None)
Quarter: 2005Q1

REPORT INFORMATION
  Report Type: 
  Country: None (occurrence: None)
  Receive Date: 20050310
  Receipt Date: 20050225
  Transmission Date: 20050727
  Serious: Yes (Other)
  Sender: FDA-Public Use
  Company Number: HQWYE613925FEB05

PATIENT
  Age: 49 Year
  Sex: Female

DRUGS (2)
  1. EFFEXOR XR [Suspect]
     Dosage: OVERDOSE ^OVER AND ABOVE^ THE 600 MG DOSE; ORAL
     Route: 048
  2. PHENCYCLIDINE (PHENCYCLIDINE, ) [Suspect]

REACTIONS (5)
  - AGGRESSION [None]
  - CONFUSIONAL STATE [None]
  - DELIRIUM [None]
  - DRUG SCREEN POSITIVE [None]
  - OVERDOSE [None]
